FAERS Safety Report 7511485-6 (Version None)
Quarter: 2011Q2

REPORT INFORMATION
  Report Type: 
  Country: None (occurrence: None)
  Receive Date: 20110531
  Receipt Date: 20110523
  Transmission Date: 20111010
  Serious: Yes (Other)
  Sender: FDA-Public Use
  Company Number: US-US-EMD SERONO, INC.-7059706

PATIENT
  Sex: Male

DRUGS (2)
  1. REBIF [Suspect]
     Indication: MULTIPLE SCLEROSIS
     Route: 058
     Dates: start: 20110217, end: 20110407
  2. ULORIC [Concomitant]
     Indication: GOUT

REACTIONS (6)
  - FATIGUE [None]
  - HEART RATE INCREASED [None]
  - URTICARIA [None]
  - AMNESIA [None]
  - FEELING ABNORMAL [None]
  - FLUSHING [None]
